FAERS Safety Report 6742652-7 (Version None)
Quarter: 2010Q2

REPORT INFORMATION
  Report Type: 
  Country: None (occurrence: None)
  Receive Date: 20100526
  Receipt Date: 20100518
  Transmission Date: 20101027
  Serious: Yes (Other)
  Sender: FDA-Public Use
  Company Number: US-AMGEN-QUU352624

PATIENT
  Sex: Female

DRUGS (3)
  1. ENBREL [Suspect]
     Indication: PSORIATIC ARTHROPATHY
     Route: 058
     Dates: start: 20041015
  2. ENBREL [Suspect]
     Indication: PSORIASIS
  3. REMICADE [Concomitant]

REACTIONS (2)
  - CORNEAL OEDEMA [None]
  - PSORIASIS [None]
